FAERS Safety Report 11756776 (Version 1)
Quarter: 2015Q4

REPORT INFORMATION
  Report Type: Spontaneous
  Country: US (occurrence: US)
  Receive Date: 20151120
  Receipt Date: 20151120
  Transmission Date: 20160304
  Serious: No
  Sender: FDA-Public Use
  Company Number: US-TEVA-550305USA

PATIENT
  Age: 29 Year
  Sex: Female

DRUGS (1)
  1. CRYSELLE [Suspect]
     Active Substance: ETHINYL ESTRADIOL\NORGESTREL
     Indication: POLYCYSTIC OVARIES
     Dates: start: 2007

REACTIONS (2)
  - Blood copper increased [Unknown]
  - Product use issue [Unknown]

NARRATIVE: CASE EVENT DATE: 20150317
